FAERS Safety Report 25491326 (Version 1)
Quarter: 2025Q2

REPORT INFORMATION
  Report Type: Spontaneous
  Country: DE (occurrence: DE)
  Receive Date: 20250629
  Receipt Date: 20250629
  Transmission Date: 20250717
  Serious: Yes (Other)
  Sender: DR REDDYS
  Company Number: None

PATIENT
  Age: 5 Year
  Sex: Female

DRUGS (9)
  1. ACYCLOVIR [Suspect]
     Active Substance: ACYCLOVIR
     Indication: Herpes simplex
  2. ACYCLOVIR [Suspect]
     Active Substance: ACYCLOVIR
     Indication: Prophylaxis
  3. THIOTEPA [Suspect]
     Active Substance: THIOTEPA
     Indication: Product used for unknown indication
  4. THYMOCYTE IMMUNE GLOBULIN NOS [Suspect]
     Active Substance: THYMOCYTE IMMUNE GLOBULIN NOS
     Indication: Product used for unknown indication
  5. CIDOFOVIR [Suspect]
     Active Substance: CIDOFOVIR
     Indication: Herpes simplex
  6. FLUDARABINE [Suspect]
     Active Substance: FLUDARABINE PHOSPHATE
     Indication: Product used for unknown indication
  7. ALEMTUZUMAB [Concomitant]
     Active Substance: ALEMTUZUMAB
     Indication: Product used for unknown indication
  8. CYCLOPHOSPHAMIDE [Concomitant]
     Active Substance: CYCLOPHOSPHAMIDE
     Indication: Product used for unknown indication
  9. MELPHALAN [Concomitant]
     Active Substance: MELPHALAN
     Indication: Product used for unknown indication

REACTIONS (16)
  - Disease recurrence [Unknown]
  - Encephalitis [Unknown]
  - Lymphoproliferative disorder [Unknown]
  - Pharyngitis [Unknown]
  - Herpes simplex [Unknown]
  - Viral load increased [Unknown]
  - Herpes simplex [Recovered/Resolved]
  - Adenovirus infection [Recovered/Resolved]
  - Mucosal inflammation [Unknown]
  - Drug resistance [Unknown]
  - Epstein-Barr virus infection [Unknown]
  - Viraemia [Unknown]
  - Drug ineffective [Unknown]
  - Stomatitis [Unknown]
  - Nervous system disorder [Unknown]
  - Nervous system disorder [Unknown]
